FAERS Safety Report 7457995-1 (Version None)
Quarter: 2011Q2

REPORT INFORMATION
  Report Type: 
  Country: None (occurrence: None)
  Receive Date: 20110503
  Receipt Date: 20110503
  Transmission Date: 20111010
  Serious: No
  Sender: FDA-Public Use
  Company Number: None

PATIENT
  Sex: Female
  Weight: 53.5244 kg

DRUGS (1)
  1. SULFASALAZINE [Suspect]
     Indication: COLITIS ULCERATIVE
     Dosage: 500 MG X2 BID PO
     Route: 048
     Dates: start: 20100614, end: 20101122

REACTIONS (3)
  - SUICIDAL IDEATION [None]
  - FEAR [None]
  - NEGATIVE THOUGHTS [None]
